FAERS Safety Report 12950995 (Version 1)
Quarter: 2016Q4

REPORT INFORMATION
  Report Type: Spontaneous
  Country: US (occurrence: US)
  Receive Date: 20161117
  Receipt Date: 20161117
  Transmission Date: 20170207
  Serious: No
  Sender: FDA-Public Use
  Company Number: US-NOVOPROD-480178

PATIENT
  Sex: Female

DRUGS (1)
  1. NOVOLOG [Suspect]
     Active Substance: INSULIN ASPART
     Indication: PRODUCT USED FOR UNKNOWN INDICATION
     Route: 058

REACTIONS (9)
  - Burning sensation [Unknown]
  - Libido decreased [Unknown]
  - Nail disorder [Unknown]
  - Depression [Unknown]
  - Nail discolouration [Unknown]
  - Thirst [Unknown]
  - Blood glucose decreased [Unknown]
  - Alopecia [Unknown]
  - Dry skin [Unknown]
